FAERS Safety Report 6101211-X (Version None)
Quarter: 2009Q1

REPORT INFORMATION
  Report Type: 
  Country: None (occurrence: None)
  Receive Date: 20090227
  Receipt Date: 20080820
  Transmission Date: 20090719
  Serious: Yes (Other)
  Sender: FDA-Public Use
  Company Number: 2008S1015185

PATIENT
  Sex: Female

DRUGS (2)
  1. ACCUTANE [Suspect]
     Indication: ACNE
     Dosage: ORAL
     Route: 048
     Dates: start: 20021001, end: 20030201
  2. AMNESTEEM [Suspect]
     Indication: ACNE
     Dosage: ORAL
     Route: 048
     Dates: start: 20030301, end: 20030401

REACTIONS (1)
  - INFLAMMATORY BOWEL DISEASE [None]
